FAERS Safety Report 5057421-6 (Version None)
Quarter: 2006Q3

REPORT INFORMATION
  Report Type: 
  Country: None (occurrence: None)
  Receive Date: 20060721
  Receipt Date: 20050928
  Transmission Date: 20061208
  Serious: No
  Sender: FDA-Public Use
  Company Number: US-GLAXOSMITHKLINE-A0576213A

PATIENT
  Age: 67 Year
  Sex: Male

DRUGS (6)
  1. AVANDIA [Suspect]
     Dosage: 8MG TWICE PER DAY
     Route: 048
     Dates: start: 20041201
  2. INSULIN [Concomitant]
  3. ASPIRIN [Concomitant]
  4. FOSINOPRIL SODIUM [Concomitant]
  5. HYDROCHLOROTHIAZIDE [Concomitant]
  6. METFORMIN [Concomitant]
     Dosage: 2000MG TWICE PER DAY

REACTIONS (3)
  - BURNING SENSATION [None]
  - CHONDROCALCINOSIS PYROPHOSPHATE [None]
  - SWELLING [None]
